FAERS Safety Report 6598945-X (Version None)
Quarter: 2010Q1

REPORT INFORMATION
  Report Type: 
  Country: None (occurrence: None)
  Receive Date: 20100224
  Receipt Date: 20090325
  Transmission Date: 20100710
  Serious: No
  Sender: FDA-Public Use
  Company Number: US-BRISTOL-MYERS SQUIBB COMPANY-14559793

PATIENT
  Age: 62 Year
  Sex: Female
  Weight: 73 kg

DRUGS (4)
  1. METFORMIN HCL [Suspect]
     Dosage: TAKEN BEFORE 2 YEARS
     Dates: end: 20090311
  2. AVAPRO [Concomitant]
  3. LEVOXYL [Concomitant]
  4. LANTUS [Concomitant]

REACTIONS (1)
  - BREATH ODOUR [None]
